FAERS Safety Report 7605567-8 (Version None)
Quarter: 2011Q3

REPORT INFORMATION
  Report Type: 
  Country: None (occurrence: None)
  Receive Date: 20110713
  Receipt Date: 20110701
  Transmission Date: 20111222
  Serious: Yes (Other)
  Sender: FDA-Public Use
  Company Number: US-BAYER-200934231NA

PATIENT
  Age: 59 Year
  Sex: Male
  Weight: 75.737 kg

DRUGS (29)
  1. LOSARTAN POTASSIUM [Concomitant]
  2. ANECTINE [Concomitant]
     Dosage: 3 MG/160 MG, UNK
     Dates: start: 19940405, end: 19940405
  3. PROTAMINE SULFATE [Concomitant]
     Dosage: 300 ML, UNK
     Route: 042
     Dates: start: 20020509, end: 20020509
  4. MIDAZOLAM HCL [Concomitant]
     Dosage: UNK
     Dates: start: 20020509, end: 20020509
  5. ANCEF [Concomitant]
     Dosage: 2 G, UNK
     Route: 042
     Dates: start: 19940405, end: 19940405
  6. HEPARIN [Concomitant]
     Dosage: 5000 U, UNK
     Route: 042
     Dates: start: 20020509, end: 20020509
  7. ROCURONIUM BROMIDE [Concomitant]
     Dosage: UNK
     Dates: start: 20020509, end: 20020509
  8. ALLOPURINOL [Concomitant]
  9. HEPARIN [Concomitant]
     Dosage: 25000 U, UNK
     Route: 042
     Dates: start: 19940405, end: 19940405
  10. TRASYLOL [Suspect]
     Dosage: 50 ML, Q1HR
     Route: 042
     Dates: start: 20020509, end: 20020509
  11. DEXAMETHASONE [Concomitant]
  12. AMIDATE [Concomitant]
     Dosage: 20 MG, UNK
     Dates: start: 19940405, end: 19940405
  13. PAVULON [Concomitant]
     Dosage: 10 MG, UNK
     Route: 042
     Dates: start: 19940405, end: 19940405
  14. LASIX [Concomitant]
     Dosage: 40 MG, UNK
     Route: 042
     Dates: start: 20020509, end: 20020509
  15. PLATELETS [Concomitant]
     Dosage: UNK
     Dates: start: 20020502, end: 20020502
  16. VERSED [Concomitant]
     Dosage: 10 MG, UNK
     Route: 042
     Dates: start: 19940405, end: 19940405
  17. SODIUM NITROPRUSSIDE [Concomitant]
     Dosage: UNK
     Dates: start: 20020509, end: 20020509
  18. ETOMIDATE [Concomitant]
     Dosage: 20 MG, UNK
     Route: 042
     Dates: start: 20020509, end: 20020509
  19. FRESH FROZEN PLASMA [Concomitant]
     Dosage: UNK
     Dates: start: 20020509, end: 20020509
  20. TRASYLOL [Suspect]
     Indication: AORTIC VALVE REPLACEMENT
     Dosage: 200 ML, UNK
     Route: 042
     Dates: start: 20020509, end: 20020509
  21. TRASYLOL [Suspect]
     Dosage: 100 CC/HOUR
     Dates: start: 20020509, end: 20020509
  22. TRASYLOL [Suspect]
     Indication: AORTIC ANEURYSM REPAIR
     Dosage: 50 MG, Q1HR
     Route: 042
     Dates: start: 19940405, end: 19940405
  23. LABETALOL HCL [Concomitant]
  24. NITROGLYCERIN [Concomitant]
     Dosage: UNK
     Route: 042
     Dates: start: 19940405, end: 19940405
  25. CEFAZOLIN [Concomitant]
     Dosage: 1 G, UNK
     Route: 042
     Dates: start: 20020509, end: 20020509
  26. RED BLOOD CELLS [Concomitant]
     Dosage: UNK
     Dates: start: 20020509, end: 20020509
  27. DILAUDID [Concomitant]
  28. NITROGLYCERIN [Concomitant]
     Dosage: UNK
     Dates: start: 20020509, end: 20020509
  29. PROTAMINE SULFATE [Concomitant]
     Dosage: 330 MG, UNK
     Route: 042

REACTIONS (13)
  - RENAL FAILURE [None]
  - UNEVALUABLE EVENT [None]
  - FEAR OF DEATH [None]
  - EMOTIONAL DISTRESS [None]
  - DEPRESSION [None]
  - MULTI-ORGAN FAILURE [None]
  - RENAL INJURY [None]
  - INJURY [None]
  - PAIN [None]
  - NERVOUSNESS [None]
  - ANXIETY [None]
  - FEAR [None]
  - ANHEDONIA [None]
